FAERS Safety Report 7033306-0 (Version None)
Quarter: 2010Q4

REPORT INFORMATION
  Report Type: 
  Country: None (occurrence: None)
  Receive Date: 20101007
  Receipt Date: 20100929
  Transmission Date: 20110411
  Serious: Yes (Life-Threatening)
  Sender: FDA-Public Use
  Company Number: B0676746A

PATIENT
  Age: 32 Year
  Sex: Female
  Weight: 119 kg

DRUGS (3)
  1. ONDANSETRON [Suspect]
     Indication: NAUSEA
     Route: 042
     Dates: start: 20100914, end: 20100915
  2. PARACETAMOL [Concomitant]
     Indication: HEADACHE
     Route: 048
     Dates: start: 20100801, end: 20100801
  3. IBUPROFEN [Concomitant]
     Indication: HEADACHE
     Route: 048
     Dates: start: 20100801, end: 20100801

REACTIONS (4)
  - BLOOD PRESSURE DECREASED [None]
  - ERYTHEMA [None]
  - PRURITUS [None]
  - RASH [None]
